FAERS Safety Report 16912292 (Version 1)
Quarter: 2019Q4

REPORT INFORMATION
  Report Type: Spontaneous
  Country: US (occurrence: US)
  Receive Date: 20191014
  Receipt Date: 20191014
  Transmission Date: 20200122
  Serious: No
  Sender: FDA-Public Use
  Company Number: US-CIPLA LTD.-2019US06170

PATIENT

DRUGS (1)
  1. ALBENDAZOLE. [Suspect]
     Active Substance: ALBENDAZOLE
     Indication: TRICHINIASIS
     Dosage: 200 MILLIGRAM, TOOK ONE LAST NIGHT AND ONE IN THE MORNING
     Route: 048
     Dates: start: 20190827

REACTIONS (2)
  - Abdominal pain upper [Unknown]
  - Condition aggravated [Unknown]
